FAERS Safety Report 4801518-X (Version None)
Quarter: 2005Q4

REPORT INFORMATION
  Report Type: 
  Country: None (occurrence: None)
  Receive Date: 20051018
  Receipt Date: 20051007
  Transmission Date: 20060501
  Serious: Yes (Hospitalization)
  Sender: FDA-Public Use
  Company Number: GR-BRISTOL-MYERS SQUIBB COMPANY-13138748

PATIENT
  Age: 50 Year
  Sex: Female

DRUGS (1)
  1. KARVEZIDE TABS 150MG/12.5MG [Suspect]
     Indication: HYPERTENSION
     Route: 048
     Dates: start: 20051001, end: 20051001

REACTIONS (3)
  - HYPOTENSION [None]
  - MELAENA [None]
  - SYNCOPE [None]
